FAERS Safety Report 16809848 (Version 1)
Quarter: 2019Q3

REPORT INFORMATION
  Report Type: Spontaneous
  Country: US (occurrence: US)
  Receive Date: 20190916
  Receipt Date: 20190916
  Transmission Date: 20191005
  Serious: No
  Sender: FDA-Public Use
  Company Number: US-AMGEN-USASP2019148584

PATIENT
  Age: 82 Year
  Sex: Female

DRUGS (1)
  1. PROLIA [Suspect]
     Active Substance: DENOSUMAB
     Indication: PRODUCT USED FOR UNKNOWN INDICATION
     Dosage: 60 MILLIGRAM, Q6MO
     Route: 065
     Dates: start: 2019

REACTIONS (7)
  - Chest pain [Recovering/Resolving]
  - Abdominal discomfort [Recovering/Resolving]
  - Decreased appetite [Recovering/Resolving]
  - Urinary incontinence [Recovering/Resolving]
  - Burning sensation [Recovering/Resolving]
  - Muscle spasms [Recovering/Resolving]
  - Heart rate increased [Recovering/Resolving]

NARRATIVE: CASE EVENT DATE: 2019
